FAERS Safety Report 9337519 (Version 2)
Quarter: 2013Q2

REPORT INFORMATION
  Report Type: Spontaneous
  Country: US (occurrence: None)
  Receive Date: 20130606
  Receipt Date: 20130621
  Transmission Date: 20140414
  Serious: No
  Sender: FDA-Public Use
  Company Number: 2013CT000047

PATIENT
  Age: 50 Year
  Sex: Female
  Weight: 72 kg

DRUGS (9)
  1. KORLYM [Suspect]
     Indication: CUSHING^S SYNDROME
     Route: 048
     Dates: start: 201205, end: 20130508
  2. SPIRONOLACTONE [Concomitant]
  3. VITAMIN B12 [Concomitant]
  4. VITAMIN D2 [Concomitant]
  5. LEVOTHYROXINE [Concomitant]
  6. METFORMIN [Concomitant]
  7. METOPROLOL [Concomitant]
  8. ZOLOFT [Concomitant]
  9. CALCIUM [Concomitant]

REACTIONS (4)
  - Weight decreased [None]
  - Alopecia [None]
  - Vaginal haemorrhage [None]
  - Cervical polyp [None]
